FAERS Safety Report 5619568-2 (Version None)
Quarter: 2008Q1

REPORT INFORMATION
  Report Type: 
  Country: None (occurrence: None)
  Receive Date: 20080205
  Receipt Date: 20080205
  Transmission Date: 20080703
  Serious: Yes (Other)
  Sender: FDA-Public Use
  Company Number: None

PATIENT
  Sex: Female
  Weight: 65.7716 kg

DRUGS (1)
  1. TRAMADOL HCL [Suspect]
     Indication: ANALGESIA
     Dosage: 50 MG 1 - 3 DAY PO
     Route: 048
     Dates: start: 20060707, end: 20070810

REACTIONS (4)
  - FALL [None]
  - JOINT INJURY [None]
  - PETIT MAL EPILEPSY [None]
  - UNRESPONSIVE TO STIMULI [None]
